FAERS Safety Report 8376382-5 (Version None)
Quarter: 2012Q2

REPORT INFORMATION
  Report Type: 
  Country: None (occurrence: None)
  Receive Date: 20120522
  Receipt Date: 20120518
  Transmission Date: 20120825
  Serious: Yes (Death, Other)
  Sender: FDA-Public Use
  Company Number: PHHY2012US042701

PATIENT
  Age: 32 Year
  Sex: Female

DRUGS (2)
  1. HEPARIN [Suspect]
     Indication: HEPATIC VEIN THROMBOSIS
     Route: 042
  2. TISSUE PLASMINOGEN ACTIVATOR, RECOMBINATIVE [Suspect]
     Indication: HEPATIC VEIN THROMBOSIS
     Dosage: 3 U, UNK

REACTIONS (7)
  - HYDROCEPHALUS [None]
  - HEPARIN-INDUCED THROMBOCYTOPENIA [None]
  - CEREBRAL VENOUS THROMBOSIS [None]
  - CEREBRAL INFARCTION [None]
  - MENTAL STATUS CHANGES [None]
  - BRAIN HERNIATION [None]
  - SUBDURAL HAEMATOMA [None]
